FAERS Safety Report 9504123 (Version 1)
Quarter: 2013Q3

REPORT INFORMATION
  Report Type: Spontaneous
  Country: US (occurrence: US)
  Receive Date: 20130906
  Receipt Date: 20130906
  Transmission Date: 20140515
  Serious: Yes (Hospitalization, Other)
  Sender: FDA-Public Use
  Company Number: US-ELI_LILLY_AND_COMPANY-US201308009024

PATIENT
  Age: 94 Year
  Sex: Male

DRUGS (16)
  1. TRAMADOL [Concomitant]
  2. TRAZODONE [Concomitant]
  3. PREDNISONE [Concomitant]
  4. LEVAQUIN [Concomitant]
  5. SYMBICORT [Concomitant]
  6. ALBUTEROL                          /00139501/ [Concomitant]
  7. XANAX [Concomitant]
  8. PLAVIX [Concomitant]
  9. B12                                /00056202/ [Concomitant]
     Route: 030
  10. LASIX                              /00032601/ [Concomitant]
  11. HEPARIN [Concomitant]
  12. ATROVENT [Concomitant]
  13. SYNTHYROID [Concomitant]
  14. LOPRESSOR [Concomitant]
  15. SILVADENE [Concomitant]
  16. CYMBALTA [Suspect]
     Dosage: 30 MG, QD

REACTIONS (2)
  - Dyspnoea [Unknown]
  - Creatinine renal clearance decreased [Unknown]
